FAERS Safety Report 4479308-X (Version None)
Quarter: 2004Q4

REPORT INFORMATION
  Report Type: 
  Country: None (occurrence: None)
  Receive Date: 20041015
  Receipt Date: 20030319
  Transmission Date: 20050328
  Serious: Yes (Hospitalization)
  Sender: FDA-Public Use
  Company Number: 2004237509CA

PATIENT
  Age: 59 Year
  Sex: Female

DRUGS (4)
  1. ZYVOXAM           (LINEZOLID) [Suspect]
     Indication: PNEUMONIA STAPHYLOCOCCAL
     Dosage: 600 MG, ORAL
     Route: 048
     Dates: start: 20021004, end: 20021010
  2. CIPROFLOXACIN [Concomitant]
  3. TIMENTIN [Concomitant]
  4. VANCOMYCIN [Concomitant]

REACTIONS (1)
  - UROSEPSIS [None]
